FAERS Safety Report 13209633 (Version 1)
Quarter: 2017Q1

REPORT INFORMATION
  Report Type: Spontaneous
  Country: US (occurrence: US)
  Receive Date: 20170209
  Receipt Date: 20170209
  Transmission Date: 20170428
  Serious: No
  Sender: FDA-Public Use
  Company Number: US-ALLERGAN-1651411US

PATIENT
  Sex: Male

DRUGS (1)
  1. BOTOX [Suspect]
     Active Substance: ONABOTULINUMTOXINA
     Indication: NEUROGENIC BLADDER
     Dosage: 200 UNITS, SINGLE
     Route: 030

REACTIONS (5)
  - Urinary incontinence [Unknown]
  - Erectile dysfunction [Unknown]
  - Constipation [Unknown]
  - Therapeutic response decreased [Unknown]
  - Bladder spasm [Unknown]
